FAERS Safety Report 8144223-7 (Version None)
Quarter: 2012Q1

REPORT INFORMATION
  Report Type: 
  Country: None (occurrence: None)
  Receive Date: 20120214
  Receipt Date: 20120207
  Transmission Date: 20120608
  Serious: Yes (Other)
  Sender: FDA-Public Use
  Company Number: 2012SP007252

PATIENT
  Sex: Female

DRUGS (3)
  1. VICTRELIS [Suspect]
     Indication: HEPATITIS C
     Dates: start: 20111111
  2. RIBAVIRIN [Suspect]
     Indication: HEPATITIS C
     Dates: start: 20111014
  3. PEGASYS [Suspect]
     Indication: HEPATITIS C
     Dates: start: 20111014

REACTIONS (6)
  - DYSGEUSIA [None]
  - COUGH [None]
  - DEHYDRATION [None]
  - CHROMATURIA [None]
  - ABDOMINAL DISCOMFORT [None]
  - PNEUMONIA [None]
